FAERS Safety Report 19747738 (Version 1)
Quarter: 2021Q3

REPORT INFORMATION
  Report Type: Report from Study
  Country: US (occurrence: US)
  Receive Date: 20210825
  Receipt Date: 20210825
  Transmission Date: 20211014
  Serious: Yes (Other)
  Sender: FDA-Public Use
  Company Number: US-HORIZON THERAPEUTICS-HZN-2021-003659

PATIENT

DRUGS (1)
  1. TEPEZZA [Suspect]
     Active Substance: TEPROTUMUMAB-TRBW
     Indication: ENDOCRINE OPHTHALMOPATHY
     Dosage: UNK
     Route: 065
     Dates: start: 20210510

REACTIONS (5)
  - Nephrolithiasis [Unknown]
  - Cystitis [Not Recovered/Not Resolved]
  - Diabetes mellitus [Unknown]
  - Muscle spasms [Not Recovered/Not Resolved]
  - Blood glucose increased [Unknown]
